FAERS Safety Report 4383832-8 (Version None)
Quarter: 2004Q2

REPORT INFORMATION
  Report Type: 
  Country: None (occurrence: None)
  Receive Date: 20040608
  Receipt Date: 20030821
  Transmission Date: 20050107
  Serious: Yes (Other)
  Sender: FDA-Public Use
  Company Number: 200312961BCC

PATIENT
  Age: 17 Year
  Sex: Female
  Weight: 72.5755 kg

DRUGS (4)
  1. ALEVE [Suspect]
     Indication: BACK INJURY
     Dosage: 660 MG, TID, ORAL
     Route: 048
     Dates: start: 20030815, end: 20030820
  2. ALEVE [Suspect]
     Indication: BACK PAIN
     Dosage: 660 MG, TID, ORAL
     Route: 048
     Dates: start: 20030815, end: 20030820
  3. ALEVE [Suspect]
     Dosage: 440 MG, ONCE, ORAL
     Route: 048
     Dates: start: 20030821
  4. ORTHO TRI-CYCLEN [Concomitant]

REACTIONS (3)
  - APHTHOUS STOMATITIS [None]
  - DYSPNOEA [None]
  - PYREXIA [None]
